FAERS Safety Report 10638949 (Version 1)
Quarter: 2014Q4

REPORT INFORMATION
  Report Type: Spontaneous
  Country: US (occurrence: US)
  Receive Date: 20141208
  Receipt Date: 20141208
  Transmission Date: 20150529
  Serious: No
  Sender: FDA-Public Use
  Company Number: US-GLAXOSMITHKLINE-US2014GSK026333

PATIENT
  Age: 63 Year
  Sex: Male

DRUGS (3)
  1. NICORETTE [Suspect]
     Active Substance: NICOTINE
     Indication: TOBACCO ABUSE
     Route: 002
     Dates: start: 20140917
  2. BLOOD PRESSURE MEDICATION [Concomitant]
     Active Substance: UNSPECIFIED INGREDIENT
  3. DIABETIC MEDICATION (NOS) [Concomitant]

REACTIONS (2)
  - Drug administration error [Unknown]
  - Blood glucose increased [Recovering/Resolving]
